FAERS Safety Report 7778876-X (Version None)
Quarter: 2011Q3

REPORT INFORMATION
  Report Type: 
  Country: None (occurrence: None)
  Receive Date: 20110926
  Receipt Date: 20110922
  Transmission Date: 20111222
  Serious: Yes (Other)
  Sender: FDA-Public Use
  Company Number: US-AMGEN-USASP2011017675

PATIENT
  Age: 62 Year
  Sex: Female

DRUGS (2)
  1. NEUMEGA [Concomitant]
  2. NPLATE [Suspect]
     Indication: IDIOPATHIC THROMBOCYTOPENIC PURPURA
     Dosage: 8 MUG/KG, UNK
     Dates: start: 20110211, end: 20110325

REACTIONS (3)
  - THROMBOCYTOPENIA [None]
  - DRUG INEFFECTIVE [None]
  - MYELODYSPLASTIC SYNDROME [None]
